FAERS Safety Report 15169697 (Version 1)
Quarter: 2018Q3

REPORT INFORMATION
  Report Type: Spontaneous
  Country: US (occurrence: US)
  Receive Date: 20180621
  Receipt Date: 20180621
  Transmission Date: 20181010
  Serious: Yes (Life-Threatening, Other)
  Sender: FDA-Public Use
  Company Number: None

PATIENT
  Age: 33 Year
  Sex: Male
  Weight: 90.72 kg

DRUGS (2)
  1. VENTOLIN [Suspect]
     Active Substance: ALBUTEROL SULFATE
     Indication: DYSPNOEA
     Dosage: 2 PUFFS
     Route: 048
     Dates: start: 201806, end: 201806
  2. LIQUID IODINE [Concomitant]

REACTIONS (4)
  - Product quality issue [None]
  - Product formulation issue [None]
  - Insurance issue [None]
  - Asphyxia [None]

NARRATIVE: CASE EVENT DATE: 201806
